FAERS Safety Report 6603301-1 (Version None)
Quarter: 2010Q1

REPORT INFORMATION
  Report Type: 
  Country: None (occurrence: None)
  Receive Date: 20100218
  Receipt Date: 20100210
  Transmission Date: 20100710
  Serious: Yes (Hospitalization)
  Sender: FDA-Public Use
  Company Number: GRP10000010

PATIENT
  Sex: Female

DRUGS (1)
  1. ACTONEL [Suspect]
     Indication: OSTEOPOROSIS
     Dosage: ORAL
     Route: 048

REACTIONS (5)
  - DISORDER OF ORBIT [None]
  - EYE PAIN [None]
  - EYE SWELLING [None]
  - EYELID OEDEMA [None]
  - MASS [None]
